FAERS Safety Report 13725917 (Version 9)
Quarter: 2018Q2

REPORT INFORMATION
  Report Type: Report from Study
  Country: DE (occurrence: DE)
  Receive Date: 20170706
  Receipt Date: 20180619
  Transmission Date: 20180711
  Serious: Yes (Hospitalization)
  Sender: FDA-Public Use
  Company Number: PHHY2017DE097458

PATIENT
  Age: 66 Year
  Sex: Female
  Weight: 52.6 kg

DRUGS (6)
  1. POTASSIUM [Concomitant]
     Active Substance: POTASSIUM
     Indication: HYPOKALAEMIA
     Dosage: 40 MMOL, QD
     Route: 048
     Dates: start: 201612, end: 20170111
  2. SIGNIFOR [Suspect]
     Active Substance: PASIREOTIDE
     Indication: PITUITARY-DEPENDENT CUSHING^S SYNDROME
     Dosage: 1.2 MG, QD
     Route: 058
     Dates: start: 20161222, end: 20161222
  3. GABAPENTIN. [Concomitant]
     Active Substance: GABAPENTIN
     Indication: SPONDYLOLISTHESIS
     Dosage: 600 MG, QD
     Route: 065
  4. L THYROXIN [Concomitant]
     Active Substance: LEVOTHYROXINE SODIUM
     Indication: HYPOTHYROIDISM
     Dosage: 75 UG, QD
     Route: 048
  5. PANTOPRAZOL [Concomitant]
     Active Substance: PANTOPRAZOLE SODIUM
     Indication: PROPHYLAXIS
     Dosage: 40 MG, QD
     Route: 065
     Dates: end: 201703
  6. SIGNIFOR [Suspect]
     Active Substance: PASIREOTIDE
     Indication: CARCINOID TUMOUR
     Dosage: 0.6 MG, QD
     Route: 058
     Dates: start: 20161223, end: 20170301

REACTIONS (14)
  - Fatigue [Recovered/Resolved]
  - Diarrhoea infectious [Recovered/Resolved]
  - Asthenia [Recovered/Resolved]
  - Vomiting [Recovered/Resolved]
  - Fatigue [Recovered/Resolved]
  - Decreased appetite [Unknown]
  - Nausea [Recovered/Resolved]
  - Hypotension [Unknown]
  - Gastrointestinal infection [Recovered/Resolved]
  - Vomiting [Recovered/Resolved]
  - Vertigo [Recovered/Resolved]
  - Adrenocortical insufficiency acute [Recovered/Resolved]
  - Nausea [Recovered/Resolved]
  - Diarrhoea [Recovered/Resolved]

NARRATIVE: CASE EVENT DATE: 20161222
